FAERS Safety Report 15738904 (Version 1)
Quarter: 2018Q4

REPORT INFORMATION
  Report Type: Spontaneous
  Country: JP (occurrence: JP)
  Receive Date: 20181219
  Receipt Date: 20181219
  Transmission Date: 20190205
  Serious: Yes (Hospitalization, Other)
  Sender: FDA-Public Use
  Company Number: JP-ROCHE-2227776

PATIENT
  Age: 45 Year
  Sex: Male

DRUGS (4)
  1. ALECENSA [Interacting]
     Active Substance: ALECTINIB HYDROCHLORIDE
     Route: 048
     Dates: start: 2017
  2. LEVOFLOXACIN HEMIHYDRATE [Interacting]
     Active Substance: LEVOFLOXACIN
     Indication: PNEUMONIA
     Route: 048
     Dates: start: 201709
  3. LEVOFLOXACIN HEMIHYDRATE [Interacting]
     Active Substance: LEVOFLOXACIN
     Indication: PYREXIA
     Route: 048
     Dates: start: 201809, end: 2018
  4. ALECENSA [Suspect]
     Active Substance: ALECTINIB HYDROCHLORIDE
     Indication: LUNG ADENOCARCINOMA
     Route: 048
     Dates: start: 20170630

REACTIONS (11)
  - Pneumonia [Unknown]
  - Dysgeusia [Unknown]
  - Appendicitis [Unknown]
  - Malaise [Unknown]
  - Arthralgia [Recovered/Resolved]
  - Drug interaction [Unknown]
  - Constipation [Unknown]
  - Pyrexia [Unknown]
  - Pyrexia [Unknown]
  - Pain [Unknown]
  - Abdominal distension [Unknown]

NARRATIVE: CASE EVENT DATE: 201709
